FAERS Safety Report 15275629 (Version 1)
Quarter: 2018Q3

REPORT INFORMATION
  Report Type: Spontaneous
  Country: US (occurrence: US)
  Receive Date: 20180813
  Receipt Date: 20180813
  Transmission Date: 20181010
  Serious: Yes (Death)
  Sender: FDA-Public Use
  Company Number: None

PATIENT
  Age: 21 Year
  Sex: Male
  Weight: 99 kg

DRUGS (11)
  1. GABAPENTIN. [Concomitant]
     Active Substance: GABAPENTIN
  2. ZOFRAN [Concomitant]
     Active Substance: ONDANSETRON HYDROCHLORIDE
  3. MIRALAX [Concomitant]
     Active Substance: POLYETHYLENE GLYCOL 3350
  4. DOCUSATE [Concomitant]
     Active Substance: DOCUSATE
  5. SERTRALINE [Concomitant]
     Active Substance: SERTRALINE HYDROCHLORIDE
  6. SUBOXONE [Suspect]
     Active Substance: BUPRENORPHINE HYDROCHLORIDE\NALOXONE HYDROCHLORIDE
     Indication: PAIN
     Dosage: ?          QUANTITY:1 FILM STRIP;?
     Route: 060
     Dates: start: 20180612, end: 20180615
  7. THC 3.4G GUMMIES [Concomitant]
  8. VITAMIN D [Concomitant]
     Active Substance: CHOLECALCIFEROL
  9. CLONAZEPAM. [Concomitant]
     Active Substance: CLONAZEPAM
  10. SUBOXONE [Suspect]
     Active Substance: BUPRENORPHINE HYDROCHLORIDE\NALOXONE HYDROCHLORIDE
     Indication: INTERVERTEBRAL DISC PROTRUSION
     Dosage: ?          QUANTITY:1 FILM STRIP;?
     Route: 060
     Dates: start: 20180612, end: 20180615
  11. DIPHENHYDRAMINE. [Concomitant]
     Active Substance: DIPHENHYDRAMINE

REACTIONS (18)
  - Unresponsive to stimuli [None]
  - Brain herniation [None]
  - Brain death [None]
  - Pulmonary congestion [None]
  - Dry skin [None]
  - Fatigue [None]
  - Nausea [None]
  - Skin warm [None]
  - Memory impairment [None]
  - Respiratory rate decreased [None]
  - Brain oedema [None]
  - Tachycardia [None]
  - Pneumonia [None]
  - Malaise [None]
  - Feeling abnormal [None]
  - Pulse abnormal [None]
  - Mydriasis [None]
  - Urinary retention [None]

NARRATIVE: CASE EVENT DATE: 20180615
